FAERS Safety Report 7377523-9 (Version None)
Quarter: 2011Q1

REPORT INFORMATION
  Report Type: 
  Country: None (occurrence: None)
  Receive Date: 20110328
  Receipt Date: 20110323
  Transmission Date: 20110831
  Serious: Yes (Other)
  Sender: FDA-Public Use
  Company Number: US-AMGEN-USASP2011015102

PATIENT
  Age: 71 Year
  Sex: Female
  Weight: 69.9 kg

DRUGS (1)
  1. NPLATE [Suspect]
     Indication: IDIOPATHIC THROMBOCYTOPENIC PURPURA
     Dosage: 200 A?G, QWK
     Route: 058
     Dates: start: 20110111

REACTIONS (3)
  - REPETITIVE SPEECH [None]
  - PLATELET COUNT DECREASED [None]
  - CONFUSIONAL STATE [None]
